FAERS Safety Report 5449490-6 (Version None)
Quarter: 2007Q3

REPORT INFORMATION
  Report Type: 
  Country: None (occurrence: None)
  Receive Date: 20070907
  Receipt Date: 20070822
  Transmission Date: 20080115
  Serious: Yes (Hospitalization)
  Sender: FDA-Public Use
  Company Number: TPG2007A00424

PATIENT
  Age: 62 Year
  Sex: Female

DRUGS (4)
  1. PIOGLITAZONE HCL [Suspect]
     Indication: DRUG USE FOR UNKNOWN INDICATION
     Dosage: PER ORAL
     Route: 048
     Dates: start: 20070405, end: 20070604
  2. RAMIPRIL [Concomitant]
  3. METOPROLOL TARTRATE [Concomitant]
  4. HYDROCHLOROTHIAZIDE [Concomitant]

REACTIONS (14)
  - BRADYKINESIA [None]
  - DISTURBANCE IN ATTENTION [None]
  - FALL [None]
  - HEADACHE [None]
  - HEMIPARESIS [None]
  - HYPERREFLEXIA [None]
  - HYPOGLYCAEMIA [None]
  - LOSS OF CONSCIOUSNESS [None]
  - MALAISE [None]
  - SENSATION OF HEAVINESS [None]
  - SOMNOLENCE [None]
  - SUBDURAL HAEMATOMA [None]
  - SUPRAVENTRICULAR EXTRASYSTOLES [None]
  - VOMITING [None]
